FAERS Safety Report 9425187 (Version 1)
Quarter: 2013Q3

REPORT INFORMATION
  Report Type: Spontaneous
  Country: GB (occurrence: None)
  Receive Date: 20130725
  Receipt Date: 20130725
  Transmission Date: 20140515
  Serious: Yes (Other)
  Sender: FDA-Public Use
  Company Number: AUR-APL-2013-05964

PATIENT
  Age: 27 Year
  Sex: Male

DRUGS (6)
  1. LEVETIRACETAM [Suspect]
     Indication: PRODUCT USED FOR UNKNOWN INDICATION
     Dosage: 3 GM (1.5 GM, 2 IN 1 D)
  2. CLOBAZAM (CLOBAZAM) [Concomitant]
  3. DEXAMETHASONE (DEXAMETHASONE (DEXAMETHASONE) [Concomitant]
  4. PHENYTOIN (PHENYTOIN) [Concomitant]
  5. SODIUM VALPROATE  (VALPROATE SODIUM) [Concomitant]
  6. TEMOZOLAMIDE (TEMOZOLOMIDE) [Concomitant]

REACTIONS (1)
  - Convulsion [None]
